FAERS Safety Report 7065592-5 (Version None)
Quarter: 2010Q4

REPORT INFORMATION
  Report Type: 
  Country: None (occurrence: None)
  Receive Date: 20101027
  Receipt Date: 20101020
  Transmission Date: 20110411
  Serious: Yes (Other)
  Sender: FDA-Public Use
  Company Number: BR-ROCHE-735361

PATIENT
  Sex: Male
  Weight: 68.7 kg

DRUGS (2)
  1. RIVOTRIL [Suspect]
     Indication: PANIC REACTION
     Dosage: CO-INDICATION: ANXIETY
     Route: 048
     Dates: start: 20100701
  2. RANITIDINE [Concomitant]
     Indication: GASTRIC DISORDER
     Dosage: AS NEEDED, CO-INDICATION: SPINE DISORDER
     Route: 048

REACTIONS (8)
  - ANXIETY [None]
  - FIBROMYALGIA [None]
  - HEADACHE [None]
  - ILL-DEFINED DISORDER [None]
  - INTERVERTEBRAL DISC PROTRUSION [None]
  - MYALGIA [None]
  - NAUSEA [None]
  - TENSION [None]
